FAERS Safety Report 6117655-6 (Version None)
Quarter: 2009Q1

REPORT INFORMATION
  Report Type: 
  Country: None (occurrence: None)
  Receive Date: 20090314
  Receipt Date: 20090122
  Transmission Date: 20090719
  Serious: No
  Sender: FDA-Public Use
  Company Number: US-ABBOTT-09P-163-0499543-00

PATIENT
  Sex: Female
  Weight: 79.904 kg

DRUGS (6)
  1. HUMIRA [Suspect]
     Indication: CROHN'S DISEASE
     Route: 058
     Dates: start: 20070401, end: 20081207
  2. ASACOL [Concomitant]
     Indication: CROHN'S DISEASE
     Route: 048
  3. COLESTID [Concomitant]
     Indication: CROHN'S DISEASE
     Route: 048
  4. TOPROL-XL [Concomitant]
     Indication: HYPERTENSION
     Dosage: UNKNOWN
  5. ACCURETIC [Concomitant]
     Indication: HYPERTENSION
     Route: 048
  6. VITAMIN B-12 [Concomitant]
     Indication: DRUG USE FOR UNKNOWN INDICATION
     Route: 030

REACTIONS (3)
  - MORGANELLA INFECTION [None]
  - PYODERMA GANGRENOSUM [None]
  - SKIN ULCER [None]
